FAERS Safety Report 25067843 (Version 1)
Quarter: 2025Q1

REPORT INFORMATION
  Report Type: Spontaneous
  Country: US (occurrence: None)
  Receive Date: 20250311
  Receipt Date: 20250311
  Transmission Date: 20250408
  Serious: Yes (Hospitalization)
  Sender: FDA-CTU
  Company Number: None

PATIENT
  Age: 56 Year
  Sex: Female

DRUGS (2)
  1. HADLIMA [Suspect]
     Active Substance: ADALIMUMAB-BWWD
     Dates: start: 20250130, end: 20250221
  2. HADLIMA [Concomitant]
     Active Substance: ADALIMUMAB-BWWD
     Dates: start: 20250130

REACTIONS (4)
  - Dyspnoea [None]
  - Headache [None]
  - Chest pain [None]
  - Therapy interrupted [None]

NARRATIVE: CASE EVENT DATE: 20250221
